FAERS Safety Report 13994362 (Version 1)
Quarter: 2017Q3

REPORT INFORMATION
  Report Type: Other
  Country: GB (occurrence: US)
  Receive Date: 20170920
  Receipt Date: 20170920
  Transmission Date: 20171128
  Serious: Yes (Life-Threatening, Hospitalization, Other)
  Sender: FDA-Public Use
  Company Number: US-INTERNATIONAL MEDICATION SYSTEMS, LIMITED-2027028

PATIENT
  Age: 29 Year
  Sex: Female

DRUGS (2)
  1. EPINEPHRINE INJECTION [Suspect]
     Active Substance: EPINEPHRINE
     Indication: SUICIDE ATTEMPT
  2. BENADRYL [Suspect]
     Active Substance: DIPHENHYDRAMINE HYDROCHLORIDE

REACTIONS (3)
  - Myocardial ischaemia [Recovering/Resolving]
  - Left ventricular dysfunction [Recovering/Resolving]
  - Toxicity to various agents [Recovering/Resolving]
